FAERS Safety Report 7991201 (Version 2)
Quarter: 2012Q4

REPORT INFORMATION
  Report Type: 
  Country: FR (occurrence: FR)
  Receive Date: 20110615
  Receipt Date: 20121220
  Transmission Date: 20130627
  Serious: Yes (Other)
  Sender: FDA-Public Use
  Company Number: FR-AMGEN-FRASP2011029633

PATIENT
  Age: 38 Year
  Sex: Female
  Weight: 67 kg

DRUGS (8)
  1. ENBREL [Suspect]
     Indication: PRODUCT USED FOR UNKNOWN INDICATION
     Dosage: 50 mg, weekly
     Route: 058
     Dates: start: 20110104, end: 20110208
  2. CORTANCYL [Concomitant]
     Indication: SPONDYLOARTHROPATHY
     Dosage: 5 mg, 1x/day
     Route: 048
     Dates: start: 20110104, end: 20110408
  3. NABUMETONE [Concomitant]
     Indication: SPONDYLOARTHROPATHY
     Dosage: 2 g, 1x/day
     Route: 048
     Dates: start: 20110104
  4. INIPOMP [Concomitant]
     Indication: PROPHYLAXIS
     Dosage: 20 mg, 1x/day
     Route: 048
     Dates: start: 20080730, end: 20110315
  5. PROZAC [Concomitant]
     Indication: DEPRESSION
     Dosage: 10 mg, qd
     Route: 048
     Dates: start: 200807, end: 20110208
  6. LEVOTHYROX [Concomitant]
     Indication: HYPOTHYROIDISM
     Dosage: 150 ug, 1x/day
     Route: 048
     Dates: start: 20100727
  7. TRAMADOL [Concomitant]
     Indication: SPONDYLOARTHROPATHY
     Dosage: 2 DF, 1x/day
     Route: 048
     Dates: start: 20101112
  8. CONTRAMAL [Concomitant]
     Indication: SPONDYLOARTHROPATHY
     Dosage: 2 DF, 1x/day
     Route: 048
     Dates: start: 20101112

REACTIONS (3)
  - Sarcoidosis [Not Recovered/Not Resolved]
  - Skin plaque [Unknown]
  - Erythema nodosum [Recovering/Resolving]
